FAERS Safety Report 19272028 (Version 2)
Quarter: 2021Q3

REPORT INFORMATION
  Report Type: Report from Study
  Country: None (occurrence: US)
  Receive Date: 20210519
  Receipt Date: 20210708
  Transmission Date: 20211014
  Serious: Yes (Other)
  Sender: FDA-Public Use
  Company Number: US-ABBVIE-21K-163-3904060-00

PATIENT
  Sex: Female
  Weight: 88.53 kg

DRUGS (34)
  1. RINVOQ [Suspect]
     Active Substance: UPADACITINIB
     Route: 048
     Dates: start: 20210506
  2. TRAMADOL. [Concomitant]
     Active Substance: TRAMADOL
     Indication: PAIN
     Dosage: AT NIGHT AS NEEDED
     Dates: start: 20100630
  3. MYRBETRIQ [Concomitant]
     Active Substance: MIRABEGRON
     Indication: CYSTITIS INTERSTITIAL
     Dosage: AT NIGHT
     Dates: start: 20181217
  4. TROSPIUM CHLORIDE. [Concomitant]
     Active Substance: TROSPIUM CHLORIDE
     Indication: CYSTITIS INTERSTITIAL
     Dates: start: 20201228
  5. LISINOPRIL. [Concomitant]
     Active Substance: LISINOPRIL
     Dosage: INCREASED
     Dates: start: 20191127, end: 2019
  6. TRAZODONE [Concomitant]
     Active Substance: TRAZODONE HYDROCHLORIDE
     Indication: FIBRINOLYSIS
     Dosage: AT NIGHT
     Dates: start: 20071030
  7. POTASSIUM CHLORIDE. [Concomitant]
     Active Substance: POTASSIUM CHLORIDE
     Indication: DIURETIC THERAPY
     Dates: start: 20100316
  8. CYCLOBENZAPRINE. [Concomitant]
     Active Substance: CYCLOBENZAPRINE
     Indication: PAIN
     Dosage: AT NIGHT AS NEEDED
     Dates: start: 20160315
  9. PREDNISONE. [Concomitant]
     Active Substance: PREDNISONE
     Indication: RHEUMATOID ARTHRITIS
     Dosage: 4?1 WEEK, 3?1 WEE, 2?WEEK, 1?1 WEEK
     Dates: start: 20201209
  10. DICLOFENAC [Concomitant]
     Active Substance: DICLOFENAC
     Indication: RHEUMATOID ARTHRITIS
     Dosage: AS NEEDED, 1 PERCENT
     Dates: start: 20160616
  11. MONTELUKAST [Concomitant]
     Active Substance: MONTELUKAST SODIUM
     Indication: HYPERSENSITIVITY
     Dosage: AT NIGHT
     Dates: start: 20170419
  12. RINVOQ [Suspect]
     Active Substance: UPADACITINIB
     Indication: RHEUMATOID ARTHRITIS
     Dosage: ER 30
     Route: 048
     Dates: start: 20210227, end: 20210303
  13. LISINOPRIL. [Concomitant]
     Active Substance: LISINOPRIL
     Dosage: INCREASED
     Dates: start: 20190219, end: 2019
  14. LISINOPRIL. [Concomitant]
     Active Substance: LISINOPRIL
     Dosage: INCREASED
     Dates: start: 20200122, end: 2020
  15. HYDROXYCHLOROQUINE [Concomitant]
     Active Substance: HYDROXYCHLOROQUINE
     Indication: RHEUMATOID ARTHRITIS
     Dates: start: 20160419
  16. FLUTICASONE. [Concomitant]
     Active Substance: FLUTICASONE
     Indication: HYPERSENSITIVITY
     Dosage: SPRAY
     Dates: start: 20170927
  17. IMVEXXY [Concomitant]
     Active Substance: ESTRADIOL
     Indication: MENOPAUSE
     Dosage: WEEKS MAINTENACE
     Dates: start: 20190917
  18. VALACYCLOVIR [Concomitant]
     Active Substance: VALACYCLOVIR HYDROCHLORIDE
     Indication: PRODUCT USED FOR UNKNOWN INDICATION
     Dates: start: 20200623
  19. AMOXICILLIN. [Concomitant]
     Active Substance: AMOXICILLIN
     Indication: KNEE ARTHROPLASTY
     Dates: start: 20210106
  20. AMLODIPINE [Concomitant]
     Active Substance: AMLODIPINE BESYLATE
     Indication: HYPERTENSION
     Dates: start: 20200311, end: 20200714
  21. AMLODIPINE [Concomitant]
     Active Substance: AMLODIPINE BESYLATE
     Dates: start: 2020, end: 20201029
  22. LISINOPRIL. [Concomitant]
     Active Substance: LISINOPRIL
     Indication: HYPERTENSION
     Dates: start: 20071030
  23. LISINOPRIL. [Concomitant]
     Active Substance: LISINOPRIL
     Dosage: INCREASED
     Dates: start: 20191213, end: 2019
  24. TRIAMCINOLONE [Concomitant]
     Active Substance: TRIAMCINOLONE
     Indication: STOMATITIS
     Dates: start: 20191030
  25. SERTRALINE [Concomitant]
     Active Substance: SERTRALINE HYDROCHLORIDE
     Indication: DEPRESSION
     Dates: start: 20201225
  26. LISINOPRIL. [Concomitant]
     Active Substance: LISINOPRIL
     Dosage: DECREASED
     Dates: start: 20190923, end: 2019
  27. RINVOQ [Suspect]
     Active Substance: UPADACITINIB
     Route: 048
     Dates: start: 20210310, end: 20210331
  28. RINVOQ [Suspect]
     Active Substance: UPADACITINIB
     Route: 048
     Dates: start: 20210407, end: 20210426
  29. BUSPIRONE [Concomitant]
     Active Substance: BUSPIRONE HYDROCHLORIDE
     Indication: ANXIETY
     Dates: start: 19961030
  30. HYDROCHLOROTHIAZIDE. [Concomitant]
     Active Substance: HYDROCHLOROTHIAZIDE
     Indication: HYPERTENSION
     Dates: start: 20071030
  31. MELOXICAM. [Concomitant]
     Active Substance: MELOXICAM
     Indication: RHEUMATOID ARTHRITIS
     Dates: start: 20190519
  32. METHOCARBAMOL. [Concomitant]
     Active Substance: METHOCARBAMOL
     Indication: RHEUMATOID ARTHRITIS
     Dosage: AS NEEDED
     Dates: start: 20170519
  33. DICYCLOMINE [Concomitant]
     Active Substance: DICYCLOMINE HYDROCHLORIDE
     Indication: ABDOMINAL PAIN UPPER
     Dosage: AS NEEDED
     Dates: start: 20190829
  34. AMLODIPINE [Concomitant]
     Active Substance: AMLODIPINE BESYLATE
     Dates: start: 20210223

REACTIONS (8)
  - Lymphadenopathy [Not Recovered/Not Resolved]
  - Spinal operation [Recovered/Resolved]
  - Alopecia [Not Recovered/Not Resolved]
  - Arthralgia [Not Recovered/Not Resolved]
  - Nodule [Not Recovered/Not Resolved]
  - Pharyngeal swelling [Not Recovered/Not Resolved]
  - Bursitis [Recovering/Resolving]
  - Hyperkeratosis [Recovering/Resolving]
